FAERS Safety Report 6976182-4 (Version None)
Quarter: 2010Q3

REPORT INFORMATION
  Report Type: 
  Country: None (occurrence: None)
  Receive Date: 20100910
  Receipt Date: 20100827
  Transmission Date: 20110219
  Serious: Yes (Hospitalization)
  Sender: FDA-Public Use
  Company Number: FR-ELI_LILLY_AND_COMPANY-FR201006007466

PATIENT
  Age: 52 Year
  Sex: Female
  Weight: 54 kg

DRUGS (5)
  1. FORTEO [Suspect]
     Indication: OSTEOPOROSIS
     Dosage: 20 UG, UNKNOWN
     Route: 058
     Dates: start: 20100426
  2. VITAMIN D [Concomitant]
     Dosage: 4 DROPS, EACH MORNING
     Route: 048
  3. TOPALGIC [Concomitant]
     Dosage: 150 MG, 2/D
     Route: 048
  4. ACETAMINOPHEN [Concomitant]
     Dosage: 1 G, 4/D IF NEEDED
     Route: 048
  5. NEXIUM [Concomitant]
     Dosage: 20 MG, DAILY (1/D)
     Route: 048

REACTIONS (1)
  - NO ADVERSE EVENT [None]
